FAERS Safety Report 9000549 (Version 2)
Quarter: 2013Q2

REPORT INFORMATION
  Report Type: Spontaneous
  Country: GB (occurrence: None)
  Receive Date: 20121221
  Receipt Date: 20130607
  Transmission Date: 20140414
  Serious: Yes (Other)
  Sender: FDA-Public Use
  Company Number: AUR-APL-2012-04629

PATIENT
  Age: 47 Year
  Sex: Male

DRUGS (3)
  1. RIBAVIRIN [Suspect]
     Indication: HEPATITIS C
     Route: 048
     Dates: start: 20120614
  2. PEGINTERFERON ALFA-2B (PEGINTERFERON ALFA-2B) [Suspect]
     Indication: HEPATITIS C
     Route: 058
     Dates: start: 20120614
  3. INCIVO [Suspect]
     Indication: HEPATITIS C
     Route: 048
     Dates: start: 20120614, end: 20120906

REACTIONS (6)
  - Rash generalised [None]
  - Nausea [None]
  - Confusional state [None]
  - Drug ineffective [None]
  - Fatigue [None]
  - Haemorrhoids [None]
